FAERS Safety Report 9496249 (Version 2)
Quarter: 2013Q3

REPORT INFORMATION
  Report Type: Report from Study
  Country: US (occurrence: US)
  Receive Date: 20130904
  Receipt Date: 20130904
  Transmission Date: 20140515
  Serious: Yes (Other)
  Sender: FDA-Public Use
  Company Number: US-ROCHE-1187600

PATIENT
  Age: 55 Year
  Sex: Female
  Weight: 77.18 kg

DRUGS (5)
  1. HERCEPTIN [Suspect]
     Indication: BREAST CANCER METASTATIC
     Route: 042
     Dates: start: 2006, end: 201308
  2. XELODA [Suspect]
     Indication: BREAST CANCER METASTATIC
     Route: 048
     Dates: start: 2011, end: 20130118
  3. XELODA [Suspect]
     Route: 048
     Dates: start: 20130118
  4. VINORELBINE TARTRATE [Suspect]
     Indication: PRODUCT USED FOR UNKNOWN INDICATION
     Route: 065
  5. XGEVA [Concomitant]
     Route: 065

REACTIONS (16)
  - Interstitial lung disease [Not Recovered/Not Resolved]
  - Urine output decreased [Unknown]
  - Lethargy [Recovering/Resolving]
  - Rhinorrhoea [Not Recovered/Not Resolved]
  - Rash [Unknown]
  - Arthralgia [Recovering/Resolving]
  - Nausea [Recovering/Resolving]
  - Adverse drug reaction [Unknown]
  - Bone pain [Recovering/Resolving]
  - Headache [Not Recovered/Not Resolved]
  - Headache [Recovering/Resolving]
  - Musculoskeletal disorder [Unknown]
  - Musculoskeletal disorder [Unknown]
  - Pain [Unknown]
  - Feeling abnormal [Unknown]
  - Overdose [Unknown]
